FAERS Safety Report 18645954 (Version 3)
Quarter: 2020Q4

REPORT INFORMATION
  Report Type: Report from Study
  Country: CO (occurrence: CO)
  Receive Date: 20201222
  Receipt Date: 20201229
  Transmission Date: 20210114
  Serious: Yes (Hospitalization, Other)
  Sender: FDA-Public Use
  Company Number: CO-AMGEN-COLSL2020167633

PATIENT
  Age: 66 Year
  Sex: Female

DRUGS (2)
  1. VECTIBIX [Suspect]
     Active Substance: PANITUMUMAB
     Indication: COLORECTAL CANCER METASTATIC
     Dosage: 350 MILLIGRAM, Q2WK
     Route: 042
     Dates: start: 20200821
  2. NATURAL TEARS [Concomitant]
     Active Substance: POLYVINYL ALCOHOL\POVIDONE
     Dosage: UNK
     Dates: start: 20201209

REACTIONS (13)
  - SARS-CoV-2 test positive [Not Recovered/Not Resolved]
  - Oropharyngeal pain [Recovering/Resolving]
  - Mouth injury [Recovering/Resolving]
  - Skin reaction [Not Recovered/Not Resolved]
  - Delusion [Recovering/Resolving]
  - Speech disorder [Recovering/Resolving]
  - Ageusia [Recovered/Resolved]
  - Anosmia [Recovered/Resolved]
  - Stomatitis [Recovering/Resolving]
  - Visual impairment [Recovering/Resolving]
  - Skin exfoliation [Recovering/Resolving]
  - Influenza like illness [Recovered/Resolved]
  - Pyrexia [Recovering/Resolving]

NARRATIVE: CASE EVENT DATE: 2020
